FAERS Safety Report 23571589 (Version 5)
Quarter: 2024Q4

REPORT INFORMATION
  Report Type: Spontaneous
  Country: JP (occurrence: JP)
  Receive Date: 20240227
  Receipt Date: 20241101
  Transmission Date: 20250114
  Serious: Yes (Death, Congenital Anomaly, Other)
  Sender: ALEXION PHARMACEUTICALS
  Company Number: 2024A047299

PATIENT
  Age: 73 Year
  Weight: 46 kg

DRUGS (8)
  1. IMFINZI [Suspect]
     Active Substance: DURVALUMAB
     Indication: Bile duct cancer
     Dosage: 1500 MILLIGRAM, Q3W
  2. IMFINZI [Suspect]
     Active Substance: DURVALUMAB
     Dosage: 1500 MILLIGRAM, Q3W
  3. IMFINZI [Suspect]
     Active Substance: DURVALUMAB
     Dosage: 1500 MILLIGRAM, Q3W
  4. IMFINZI [Suspect]
     Active Substance: DURVALUMAB
     Dosage: 1500 MILLIGRAM, Q3W
  5. CISPLATIN [Concomitant]
     Active Substance: CISPLATIN
     Indication: Bile duct cancer
     Dosage: DOSE UNKNOWN
  6. CISPLATIN [Concomitant]
     Active Substance: CISPLATIN
     Dosage: DOSE UNKNOWN
     Route: 065
  7. GEMCITABINE HYDROCHLORIDE [Concomitant]
     Active Substance: GEMCITABINE HYDROCHLORIDE
     Indication: Bile duct cancer
     Dosage: DOSE UNKNOWN
  8. GEMCITABINE HYDROCHLORIDE [Concomitant]
     Active Substance: GEMCITABINE HYDROCHLORIDE
     Dosage: DOSE UNKNOWN

REACTIONS (4)
  - Liver abscess [Fatal]
  - Septic shock [Fatal]
  - Cerebral infarction [Unknown]
  - Cardio-respiratory arrest [Unknown]
